FAERS Safety Report 10016684 (Version 2)
Quarter: 2014Q1

REPORT INFORMATION
  Report Type: Spontaneous
  Country: IN (occurrence: IN)
  Receive Date: 20140317
  Receipt Date: 20140319
  Transmission Date: 20141002
  Serious: Yes (Death)
  Sender: FDA-Public Use
  Company Number: IN-ROCHE-1365554

PATIENT
  Age: 60 Year
  Sex: Male
  Weight: 67 kg

DRUGS (2)
  1. METALYSE [Suspect]
     Indication: PRODUCT USED FOR UNKNOWN INDICATION
     Route: 042
     Dates: start: 20140311
  2. INSULIN [Concomitant]

REACTIONS (1)
  - Cardiac arrest [Fatal]
